FAERS Safety Report 7026752-2 (Version None)
Quarter: 2010Q4

REPORT INFORMATION
  Report Type: 
  Country: None (occurrence: None)
  Receive Date: 20101004
  Receipt Date: 20100924
  Transmission Date: 20110411
  Serious: Yes (Hospitalization, Other)
  Sender: FDA-Public Use
  Company Number: CA-ROCHE-716721

PATIENT
  Sex: Male
  Weight: 81.6 kg

DRUGS (16)
  1. BEVACIZUMAB [Suspect]
     Indication: METASTATIC MALIGNANT MELANOMA
     Dosage: FORM: INFUSION, OTHER INDICATION: GLIOBLASTOMA.
     Route: 042
     Dates: start: 20100527
  2. DEXAMETHASONE [Concomitant]
  3. DILANTIN [Concomitant]
  4. NEXIUM [Concomitant]
  5. TYLENOL [Concomitant]
  6. OXAZEPAM [Concomitant]
  7. METOCLOPRAMIDE [Concomitant]
  8. RANITIDINE [Concomitant]
  9. LORAZEPAM [Concomitant]
  10. ONDANSETRON [Concomitant]
  11. PROCHLORPERAZINE [Concomitant]
     Dosage: DRUG: PROCHLORAZINE.
  12. OXYCODONE [Concomitant]
  13. ATACAND [Concomitant]
  14. FRAGMIN [Concomitant]
  15. CALCIUM CARBONATE [Concomitant]
  16. ATIVAN [Concomitant]

REACTIONS (13)
  - ABDOMINAL PAIN [None]
  - AMNESIA [None]
  - APHASIA [None]
  - BALANCE DISORDER [None]
  - CHEST PAIN [None]
  - COUGH [None]
  - DIZZINESS [None]
  - MUSCLE TWITCHING [None]
  - NEOPLASM PROGRESSION [None]
  - PARAESTHESIA [None]
  - RASH [None]
  - RIB FRACTURE [None]
  - VISION BLURRED [None]
